FAERS Safety Report 19574105 (Version 1)
Quarter: 2021Q3

REPORT INFORMATION
  Report Type: Spontaneous
  Country: US (occurrence: US)
  Receive Date: 20210718
  Receipt Date: 20210718
  Transmission Date: 20211014
  Serious: No
  Sender: FDA-Public Use
  Company Number: US-SA-2021SA228588

PATIENT
  Sex: Female
  Weight: 79.38 kg

DRUGS (6)
  1. GAVISCON [Suspect]
     Active Substance: ALUMINUM HYDROXIDE\MAGNESIUM CARBONATE
     Indication: DYSPEPSIA
  2. COVID?19 VACCINE [Concomitant]
     Dosage: UNK
     Dates: start: 20210610, end: 20210610
  3. COVID?19 VACCINE [Concomitant]
     Indication: COVID-19 IMMUNISATION
     Dosage: UNK
     Dates: start: 20210528, end: 20210528
  4. FAMOTIDINE. [Concomitant]
     Active Substance: FAMOTIDINE
     Indication: DYSPEPSIA
  5. TUMS [Concomitant]
     Active Substance: CALCIUM CARBONATE
     Indication: DYSPEPSIA
  6. GAS?X [Concomitant]
     Active Substance: DIMETHICONE
     Indication: DYSPEPSIA

REACTIONS (1)
  - Drug ineffective [Unknown]
